FAERS Safety Report 26179213 (Version 1)
Quarter: 2025Q4

REPORT INFORMATION
  Report Type: Spontaneous
  Country: EU (occurrence: EU)
  Receive Date: 20251219
  Receipt Date: 20251219
  Transmission Date: 20260117
  Serious: Yes (Other)
  Sender: AUROBINDO
  Company Number: EU-AEMPS-1782988

PATIENT
  Age: 48 Year
  Sex: Female

DRUGS (4)
  1. TOPIRAMATE [Suspect]
     Active Substance: TOPIRAMATE
     Indication: Bulimia nervosa
     Dosage: 200 MILLIGRAM, TWO TIMES A DAY
     Route: 061
     Dates: start: 20191112, end: 20251125
  2. TOPIRAMATE [Suspect]
     Active Substance: TOPIRAMATE
     Indication: Impulse-control disorder
  3. CALCIUM CARBONATE\CHOLECALCIFEROL [Suspect]
     Active Substance: CALCIUM CARBONATE\CHOLECALCIFEROL
     Indication: Osteoporosis
     Dosage: 1 DOSAGE FORM, ONCE A DAY
     Route: 061
     Dates: start: 20210407
  4. CALCIFEDIOL [Suspect]
     Active Substance: CALCIFEDIOL
     Indication: Vitamin D deficiency
     Dosage: 266 MICROGRAM
     Route: 061

REACTIONS (2)
  - Nephrolithiasis [Unknown]
  - Haematuria [Unknown]

NARRATIVE: CASE EVENT DATE: 20250819
